FAERS Safety Report 13689923 (Version 1)
Quarter: 2017Q2

REPORT INFORMATION
  Report Type: Spontaneous
  Country: FR (occurrence: FR)
  Receive Date: 20170626
  Receipt Date: 20170626
  Transmission Date: 20170830
  Serious: Yes (Hospitalization, Other)
  Sender: FDA-Public Use
  Company Number: FR-PFIZER INC-2017267824

PATIENT
  Age: 80 Year
  Sex: Female

DRUGS (12)
  1. DIFFU K [Concomitant]
     Active Substance: POTASSIUM CHLORIDE
  2. PERINDOPRIL [Concomitant]
     Active Substance: PERINDOPRIL
  3. UVEDOSE [Concomitant]
     Active Substance: CHOLECALCIFEROL
  4. FLECAINE [Concomitant]
     Active Substance: FLECAINIDE
  5. IXPRIM [Concomitant]
     Active Substance: ACETAMINOPHEN\TRAMADOL HYDROCHLORIDE
  6. LYRICA [Suspect]
     Active Substance: PREGABALIN
     Indication: NEURALGIA
     Dosage: 75 MG, 2X/DAY
     Route: 048
     Dates: start: 20170522, end: 20170529
  7. AMLODIPINE [Concomitant]
     Active Substance: AMLODIPINE BESYLATE
  8. TAHOR [Concomitant]
     Active Substance: ATORVASTATIN CALCIUM
  9. EUPRESSYL /00631801/ [Concomitant]
     Active Substance: URAPIDIL
  10. LASILIX /00032601/ [Concomitant]
     Active Substance: FUROSEMIDE
  11. BISOPROLOL [Concomitant]
     Active Substance: BISOPROLOL
     Indication: ATRIAL FIBRILLATION
     Dosage: 1.25 MG, DAILY
     Dates: start: 20170526
  12. HEMIGOXINE [Concomitant]
     Active Substance: DIGOXIN
     Indication: ATRIAL FIBRILLATION
     Dosage: 0.125 MG, DAILY

REACTIONS (14)
  - Disease recurrence [Unknown]
  - Delirium [Unknown]
  - Immobile [Unknown]
  - Hallucination, visual [Unknown]
  - Restlessness [Unknown]
  - Aggression [Unknown]
  - Agitation [Unknown]
  - Vertigo [Unknown]
  - Hallucination [Recovered/Resolved]
  - Fall [Unknown]
  - Disorientation [Recovered/Resolved]
  - Intentional product use issue [Unknown]
  - Withdrawal syndrome [Recovered/Resolved]
  - Confusional state [Recovered/Resolved]

NARRATIVE: CASE EVENT DATE: 20170529
